FAERS Safety Report 9014806 (Version 2)
Quarter: 2013Q1

REPORT INFORMATION
  Report Type: Report from Study
  Country: US (occurrence: US)
  Receive Date: 20130115
  Receipt Date: 20130218
  Transmission Date: 20140127
  Serious: Yes (Hospitalization)
  Sender: FDA-Public Use
  Company Number: US-ABBOTT-13P-163-1035315-00

PATIENT
  Sex: Male
  Weight: 62.65 kg

DRUGS (4)
  1. HUMIRA [Suspect]
     Indication: CROHN^S DISEASE
     Route: 058
     Dates: start: 201111, end: 201202
  2. HUMIRA [Suspect]
     Route: 058
     Dates: start: 20130111, end: 20130111
  3. LOSARTAN [Concomitant]
     Indication: HYPERTENSION
  4. OMEPRAZOLE [Concomitant]
     Indication: PRODUCT USED FOR UNKNOWN INDICATION

REACTIONS (2)
  - Fistula [Recovered/Resolved]
  - Abdominal pain [Recovered/Resolved]
